FAERS Safety Report 21220418 (Version 1)
Quarter: 2022Q3

REPORT INFORMATION
  Report Type: Spontaneous
  Country: US (occurrence: US)
  Receive Date: 20220817
  Receipt Date: 20220817
  Transmission Date: 20221027
  Serious: Yes (Hospitalization)
  Sender: FDA-Public Use
  Company Number: US-GBT-015264

PATIENT
  Sex: Female

DRUGS (2)
  1. OXBRYTA [Suspect]
     Active Substance: VOXELOTOR
     Indication: Sickle cell disease
     Route: 048
     Dates: start: 20200304
  2. MORPHINE [Suspect]
     Active Substance: MORPHINE
     Indication: Pain

REACTIONS (3)
  - Sickle cell anaemia with crisis [Unknown]
  - Drug hypersensitivity [Unknown]
  - Bronchitis [Unknown]
